FAERS Safety Report 17786345 (Version 2)
Quarter: 2020Q2

REPORT INFORMATION
  Report Type: Spontaneous
  Country: US (occurrence: US)
  Receive Date: 20200514
  Receipt Date: 20200608
  Transmission Date: 20200714
  Serious: No
  Sender: FDA-Public Use
  Company Number: US-ASTRAZENECA-2020SE56833

PATIENT
  Age: 19743 Day
  Sex: Male
  Weight: 102.5 kg

DRUGS (1)
  1. BYDUREON BCISE [Suspect]
     Active Substance: EXENATIDE
     Indication: TYPE 2 DIABETES MELLITUS
     Route: 058
     Dates: start: 2020

REACTIONS (6)
  - Device difficult to use [Unknown]
  - Device malfunction [Unknown]
  - Injection site pruritus [Unknown]
  - Incorrect dose administered by device [Not Recovered/Not Resolved]
  - Nodule [Recovering/Resolving]
  - Device leakage [Unknown]

NARRATIVE: CASE EVENT DATE: 2020
